FAERS Safety Report 21129295 (Version 3)
Quarter: 2022Q3

REPORT INFORMATION
  Report Type: Report from Study
  Country: CA (occurrence: CA)
  Receive Date: 20220725
  Receipt Date: 20220928
  Transmission Date: 20221027
  Serious: Yes (Death, Other)
  Sender: FDA-Public Use
  Company Number: CA-ABBVIE-22K-028-4480234-00

PATIENT
  Age: 84 Year
  Sex: Female

DRUGS (2)
  1. HUMIRA [Suspect]
     Active Substance: ADALIMUMAB
     Indication: Crohn^s disease
     Route: 058
     Dates: start: 20110721
  2. CALCIUM CARBONATE\MAGNESIUM CARBONATE [Concomitant]
     Active Substance: CALCIUM CARBONATE\MAGNESIUM CARBONATE
     Indication: Product used for unknown indication
     Route: 042

REACTIONS (5)
  - Pneumonia aspiration [Fatal]
  - Acidosis [Not Recovered/Not Resolved]
  - Malaise [Unknown]
  - Palliative care [Unknown]
  - Respiratory failure [Fatal]

NARRATIVE: CASE EVENT DATE: 20220713
